FAERS Safety Report 6664634-6 (Version None)
Quarter: 2010Q1

REPORT INFORMATION
  Report Type: 
  Country: None (occurrence: None)
  Receive Date: 20100330
  Receipt Date: 20100113
  Transmission Date: 20100710
  Serious: Yes (Death)
  Sender: FDA-Public Use
  Company Number: 6057276

PATIENT
  Age: 34 Year
  Sex: Male

DRUGS (6)
  1. LEVOTHYROXINE SODIUM [Suspect]
     Indication: THYROID DISORDER
     Dosage: 1 DOSAGE FORM, (1 DOSAGE FORMS, 1 IN 1 D). ORAL;
     Route: 048
  2. CLOZAPINE [Suspect]
     Indication: SCHIZOPHRENIA, PARANOID TYPE
     Dosage: 3 DOSAGE FORMS, (1 DOSAGE FORMS, 3 IN 1 D), ORAL
     Route: 048
     Dates: start: 20090428
  3. FLUXANOL (4 PERCENT, ORAL DROPS) (FLUPENTIXOL HYDRICHLORIDE) [Suspect]
     Indication: SCHIZOPHRENIA, PARANOID TYPE
     Dosage: 30 DOSAGE FORMS (30 DOSAGE FORMS, 1 IN 1 D), ORAL
     Route: 048
  4. DEPAKOTE [Suspect]
     Indication: MANIA
     Dosage: 4 DOSAGE FORMS (1 DOSAGE FORMS, 4 IN 1 D), ORAL
     Route: 048
  5. VALIUM [Suspect]
     Indication: ANXIETY
     Dosage: 40 DOSAGE FORMS (40 DOSAGE FORMS, 1 IN 1 D), ORAL
     Route: 048
  6. ZOLPIDEM TARTRATE [Suspect]
     Indication: ANXIETY
     Dosage: 1 DOSAGE FORMS (1 DOSAGE FORMS, 1 IN 1 D), ORAL
     Route: 048

REACTIONS (1)
  - SUDDEN DEATH [None]
